FAERS Safety Report 8336060-5 (Version None)
Quarter: 2012Q1

REPORT INFORMATION
  Report Type: 
  Country: None (occurrence: None)
  Receive Date: 20120329
  Receipt Date: 20090722
  Transmission Date: 20120608
  Serious: Yes (Other)
  Sender: FDA-Public Use
  Company Number: PHEH2009US03257

PATIENT
  Age: 67 Year
  Sex: Male

DRUGS (11)
  1. METFORMIN HCL [Concomitant]
  2. METOPROLOL TARTRATE [Concomitant]
  3. SIMVASTATIN [Concomitant]
  4. PRILOSEC [Concomitant]
  5. FISH OIL (FISH OIL) [Concomitant]
  6. BENAZEPRIL HYDROCHLORIDE [Concomitant]
  7. NICOTINIC ACID [Concomitant]
  8. EXELON [Suspect]
     Dosage: 4.6 MG, TRANSDERMAL ; 9.5 MG
     Route: 062
     Dates: start: 20090201
  9. ASPIRIN [Concomitant]
  10. MILK THISTLE [Concomitant]
  11. COQ10 (UBIDECARENONE) [Concomitant]

REACTIONS (8)
  - SKIN DISORDER [None]
  - DRUG INEFFECTIVE [None]
  - DEPRESSION [None]
  - APPLICATION SITE VESICLES [None]
  - PRURITUS [None]
  - DECREASED APPETITE [None]
  - PAIN OF SKIN [None]
  - ASTHENIA [None]
